FAERS Safety Report 19007375 (Version 1)
Quarter: 2021Q1

REPORT INFORMATION
  Report Type: Spontaneous
  Country: US (occurrence: US)
  Receive Date: 20210310
  Receipt Date: 20210310
  Transmission Date: 20210420
  Serious: Yes (Other)
  Sender: FDA-Public Use
  Company Number: None

PATIENT
  Age: 40 Year

DRUGS (1)
  1. MEDICAL GRADE MANUKA HONEY [Suspect]
     Active Substance: HERBALS\HONEY
     Indication: NASAL CONGESTION
     Dosage: ?          OTHER FREQUENCY:1?2 TIMES A DAY PR;?
     Route: 055
     Dates: start: 20210118, end: 20210301

REACTIONS (6)
  - Contusion [None]
  - Nasal dryness [None]
  - Dyspnoea [None]
  - Nasal discomfort [None]
  - Somnolence [None]
  - Hallucination [None]

NARRATIVE: CASE EVENT DATE: 20210210
